FAERS Safety Report 10598605 (Version 1)
Quarter: 2014Q4

REPORT INFORMATION
  Report Type: Spontaneous
  Country: CH (occurrence: CH)
  Receive Date: 20141121
  Receipt Date: 20141121
  Transmission Date: 20150529
  Serious: Yes (Other)
  Sender: FDA-Public Use
  Company Number: CH-PFIZER INC-2014318061

PATIENT
  Age: 38 Year
  Sex: Female
  Weight: 51 kg

DRUGS (1)
  1. DEPO-PROVERA [Suspect]
     Active Substance: MEDROXYPROGESTERONE ACETATE
     Indication: CONTRACEPTION
     Dosage: 150 MG, EVERY 3 MONTHS
     Route: 030

REACTIONS (1)
  - Injection site atrophy [Recovered/Resolved with Sequelae]

NARRATIVE: CASE EVENT DATE: 201402
